FAERS Safety Report 16057183 (Version 2)
Quarter: 2019Q1

REPORT INFORMATION
  Report Type: Spontaneous
  Country: US (occurrence: US)
  Receive Date: 20190311
  Receipt Date: 20190325
  Transmission Date: 20190418
  Serious: Yes (Other)
  Sender: FDA-Public Use
  Company Number: US-ICU MEDICAL, INC.-ICU2019US00025

PATIENT
  Age: 18 Year

DRUGS (2)
  1. ERWINAZE [Suspect]
     Active Substance: ASPARAGINASE ERWINIA CHRYSANTHEMI
     Indication: LEUKAEMIA
     Dosage: 4 DOSAGE FORM
  2. 0.9% SODIUM CHLORIDE INJECTION USP (100 ML) [Suspect]
     Active Substance: SODIUM CHLORIDE
     Indication: LEUKAEMIA
     Route: 042

REACTIONS (6)
  - Oxygen saturation decreased [Unknown]
  - Hyperhidrosis [Unknown]
  - Hypotension [Unknown]
  - Erythema [Unknown]
  - Dyspnoea [Unknown]
  - Lip swelling [Unknown]
